FAERS Safety Report 24426414 (Version 5)
Quarter: 2024Q4

REPORT INFORMATION
  Report Type: Spontaneous
  Country: JP (occurrence: JP)
  Receive Date: 20241011
  Receipt Date: 20241227
  Transmission Date: 20250115
  Serious: Yes (Death, Other)
  Sender: ROCHE
  Company Number: JP-CHUGAI-2024034336

PATIENT
  Age: 36 Year
  Sex: Female
  Weight: 54 kg

DRUGS (9)
  1. CELLCEPT [Suspect]
     Active Substance: MYCOPHENOLATE MOFETIL
     Indication: Systemic lupus erythematosus
     Dosage: 1500 MILLIGRAM
     Route: 048
     Dates: start: 20211121, end: 20220624
  2. RITUXIMAB [Suspect]
     Active Substance: RITUXIMAB
     Indication: Systemic lupus erythematosus
     Route: 042
  3. PREDNISOLONE [Suspect]
     Active Substance: PREDNISOLONE
     Indication: Systemic lupus erythematosus
     Dosage: 40 MILLIGRAM
     Route: 050
     Dates: start: 20211224, end: 202206
  4. PREDNISOLONE [Suspect]
     Active Substance: PREDNISOLONE
     Dosage: 10 MILLIGRAM
     Route: 050
     Dates: start: 20220620, end: 20220624
  5. HYDROXYCHLOROQUINE SULFATE [Concomitant]
     Active Substance: HYDROXYCHLOROQUINE SULFATE
     Indication: Systemic lupus erythematosus
     Dosage: UNK
     Route: 065
     Dates: start: 20211227, end: 202206
  6. HYDROXYCHLOROQUINE SULFATE [Concomitant]
     Active Substance: HYDROXYCHLOROQUINE SULFATE
     Dosage: 200/400 MILLIGRAM, EVERY OTHER DAY
     Route: 065
     Dates: start: 20220620, end: 20220624
  7. LOSARTAN POTASSIUM [Concomitant]
     Active Substance: LOSARTAN POTASSIUM
     Route: 065
     Dates: start: 20220405, end: 20220624
  8. BROTIZOLAM [Concomitant]
     Active Substance: BROTIZOLAM
     Route: 065
     Dates: start: 20211221, end: 20220624
  9. NEXIUM [Concomitant]
     Active Substance: ESOMEPRAZOLE MAGNESIUM
     Dates: start: 20211221, end: 20220624

REACTIONS (12)
  - Acute kidney injury [Fatal]
  - COVID-19 [Fatal]
  - Cytokine storm [Fatal]
  - Pulmonary alveolar haemorrhage [Fatal]
  - Gastrointestinal necrosis [Fatal]
  - Multiple organ dysfunction syndrome [Fatal]
  - Seizure [Fatal]
  - Cerebral infarction [Fatal]
  - Dehydration [Fatal]
  - Off label use [Unknown]
  - Disseminated intravascular coagulation [Unknown]
  - Sepsis [Unknown]

NARRATIVE: CASE EVENT DATE: 20211224
